FAERS Safety Report 14880380 (Version 1)
Quarter: 2018Q2

REPORT INFORMATION
  Report Type: Spontaneous
  Country: US (occurrence: US)
  Receive Date: 20180511
  Receipt Date: 20180511
  Transmission Date: 20180711
  Serious: Yes (Death, Other)
  Sender: FDA-Public Use
  Company Number: US-CIPLA LTD.-2018US16829

PATIENT

DRUGS (3)
  1. TOPOTECAN [Suspect]
     Active Substance: TOPOTECAN HYDROCHLORIDE
     Indication: BRAIN STEM GLIOMA
     Dosage: INFUSION AT 0.08 ML/HR AND A CONCENTRATION OF 0.0667 MG/ML PER CATHETER
  2. TOPOTECAN [Suspect]
     Active Substance: TOPOTECAN HYDROCHLORIDE
     Dosage: INFUSION AT 0.02 ML/HR AT CONCENTRATION OF 0.0667 MG/ML FOR 83 HR
  3. TOPOTECAN [Suspect]
     Active Substance: TOPOTECAN HYDROCHLORIDE
     Dosage: TOTAL DOSE OF 0.403 MG IN 6.04 ML

REACTIONS (3)
  - Off label use [Unknown]
  - Neoplasm progression [Fatal]
  - Muscle spasticity [Unknown]
